FAERS Safety Report 12905478 (Version 2)
Quarter: 2019Q1

REPORT INFORMATION
  Report Type: Report from Study
  Country: IT (occurrence: IT)
  Receive Date: 20161103
  Receipt Date: 20190321
  Transmission Date: 20190417
  Serious: Yes (Hospitalization, Other)
  Sender: FDA-Public Use
  Company Number: IT-BRISTOL-MYERS SQUIBB COMPANY-BMS-2016-090766

PATIENT
  Age: 65 Year
  Sex: Female

DRUGS (1)
  1. NIVOLUMAB [Suspect]
     Active Substance: NIVOLUMAB
     Indication: NON-SMALL CELL LUNG CANCER
     Dosage: 3 MG/KG, Q2WK
     Route: 042

REACTIONS (8)
  - General physical health deterioration [Unknown]
  - Somnolence [Unknown]
  - Disorientation [Unknown]
  - Anaemia [Recovered/Resolved]
  - Pain [Unknown]
  - Skin mass [Unknown]
  - Urinary incontinence [Unknown]
  - Transfusion [Unknown]

NARRATIVE: CASE EVENT DATE: 20160107
